FAERS Safety Report 5286121-2 (Version None)
Quarter: 2007Q2

REPORT INFORMATION
  Report Type: 
  Country: None (occurrence: None)
  Receive Date: 20070404
  Receipt Date: 20070330
  Transmission Date: 20071010
  Serious: Yes (Death, Life-Threatening, Hospitalization, Other)
  Sender: FDA-Public Use
  Company Number: DE-BRISTOL-MYERS SQUIBB COMPANY-13117981

PATIENT
  Age: 76 Year
  Sex: Female
  Weight: 70 kg

DRUGS (3)
  1. IRBESARTAN [Suspect]
     Indication: HYPERTENSION
     Dates: start: 20031121, end: 20031121
  2. BLINDED: PLACEBO [Suspect]
     Indication: HYPERTENSION
     Dates: start: 20031121, end: 20031121
  3. PHENPROCOUMON [Suspect]
     Indication: PROPHYLAXIS
     Dates: start: 20031121, end: 20040430

REACTIONS (3)
  - HAEMATOMA [None]
  - PNEUMONIA [None]
  - SEPSIS [None]
